FAERS Safety Report 4478436-2 (Version None)
Quarter: 2004Q4

REPORT INFORMATION
  Report Type: 
  Country: None (occurrence: None)
  Receive Date: 20041013
  Receipt Date: 20040927
  Transmission Date: 20050328
  Serious: Yes (Death)
  Sender: FDA-Public Use
  Company Number: 2004-DE-05126BY

PATIENT
  Age: 71 Year
  Sex: Male

DRUGS (8)
  1. ATROVENT [Suspect]
     Indication: PNEUMONIA
     Dates: start: 20040401
  2. AVELOX [Suspect]
     Indication: PNEUMONIA
     Dates: start: 20040401, end: 20040401
  3. ALBUTEROL SULFATE HFA [Suspect]
     Indication: PNEUMONIA
     Dates: start: 20040401
  4. LISINOPRIL [Concomitant]
  5. HYDROCHLOROTHIAZIDE [Concomitant]
  6. COUMADIN [Concomitant]
  7. ATENOLOL [Concomitant]
  8. BCG [Concomitant]

REACTIONS (10)
  - APNOEA [None]
  - ATRIAL FIBRILLATION [None]
  - CARDIAC ARREST [None]
  - COMA [None]
  - CONFUSIONAL STATE [None]
  - CYANOSIS [None]
  - ELECTROMECHANICAL DISSOCIATION [None]
  - PULMONARY EMBOLISM [None]
  - PULSE ABSENT [None]
  - RALES [None]
